FAERS Safety Report 7394887-0 (Version None)
Quarter: 2011Q2

REPORT INFORMATION
  Report Type: 
  Country: None (occurrence: None)
  Receive Date: 20110405
  Receipt Date: 20100720
  Transmission Date: 20111010
  Serious: Yes (Other)
  Sender: FDA-Public Use
  Company Number: B0667386A

PATIENT
  Age: 36 Year
  Sex: Female
  Weight: 60 kg

DRUGS (3)
  1. ZINADOL [Suspect]
     Indication: URINARY TRACT INFECTION
     Route: 065
     Dates: start: 20100625, end: 20100705
  2. ZINADOL [Suspect]
     Indication: TONSILLITIS
     Route: 065
     Dates: start: 20100716, end: 20100723
  3. AUGMENTIN [Suspect]
     Indication: URINARY TRACT INFECTION
     Route: 065
     Dates: start: 20100625, end: 20100705

REACTIONS (3)
  - PREMATURE BABY [None]
  - AMNIOTIC FLUID VOLUME DECREASED [None]
  - DRUG EXPOSURE DURING PREGNANCY [None]
